FAERS Safety Report 10587709 (Version 1)
Quarter: 2014Q4

REPORT INFORMATION
  Report Type: Spontaneous
  Country: HR (occurrence: HR)
  Receive Date: 20141117
  Receipt Date: 20141117
  Transmission Date: 20150529
  Serious: Yes (Life-Threatening)
  Sender: FDA-Public Use
  Company Number: HR-009507513-1411HRV006395

PATIENT
  Age: 71 Year
  Sex: Female
  Weight: 80 kg

DRUGS (5)
  1. HUMALOG [Concomitant]
     Active Substance: INSULIN LISPRO
     Dosage: KWIKPEN; PRE FILLED SYRINGES, PEN; DOSE 100 IU/ML
  2. NEBILET [Concomitant]
     Active Substance: NEBIVOLOL
     Dosage: 5 MG, UNK
     Route: 048
  3. NOVO-NORM [Concomitant]
     Active Substance: REPAGLINIDE
     Route: 048
  4. CLARITIN [Suspect]
     Active Substance: LORATADINE
     Indication: HYPERSENSITIVITY
     Dosage: 10 MG ONCE A DAY, ALSO REPORTED THAT THE PATIENT  TOOK 5 TABLETS
     Route: 048
     Dates: start: 20140905, end: 20141027
  5. LERCANIL [Concomitant]
     Route: 048

REACTIONS (3)
  - Choking [Recovered/Resolved]
  - Drug ineffective [Recovered/Resolved]
  - Hypersensitivity [Recovered/Resolved]

NARRATIVE: CASE EVENT DATE: 20140905
